FAERS Safety Report 6395848-0 (Version None)
Quarter: 2009Q4

REPORT INFORMATION
  Report Type: 
  Country: None (occurrence: None)
  Receive Date: 20091009
  Receipt Date: 20090727
  Transmission Date: 20100525
  Serious: No
  Sender: FDA-Public Use
  Company Number: A0797411A

PATIENT
  Age: 53 Year
  Sex: Female

DRUGS (1)
  1. TYKERB [Suspect]
     Indication: DRUG USE FOR UNKNOWN INDICATION
     Dosage: 4TAB PER DAY
     Route: 048
     Dates: start: 20090627

REACTIONS (3)
  - DIARRHOEA [None]
  - FATIGUE [None]
  - WEIGHT DECREASED [None]
